FAERS Safety Report 9580681 (Version 1)
Quarter: 2013Q4

REPORT INFORMATION
  Report Type: Spontaneous
  Country: US (occurrence: US)
  Receive Date: 20131002
  Receipt Date: 20131002
  Transmission Date: 20140711
  Serious: No
  Sender: FDA-Public Use
  Company Number: US-009507513-1309USA006507

PATIENT
  Age: 26 Year
  Sex: Female

DRUGS (2)
  1. NEXPLANON [Suspect]
     Indication: CONTRACEPTION
     Dosage: UNKNOWN
     Route: 059
     Dates: start: 20130910, end: 20130910
  2. NEXPLANON [Suspect]
     Dosage: UNKNOWN
     Route: 059
     Dates: start: 20130910

REACTIONS (3)
  - Device difficult to use [Unknown]
  - Product container issue [Unknown]
  - No adverse event [Unknown]
